FAERS Safety Report 5226710-4 (Version None)
Quarter: 2007Q1

REPORT INFORMATION
  Report Type: 
  Country: None (occurrence: None)
  Receive Date: 20070129
  Receipt Date: 20061130
  Transmission Date: 20070707
  Serious: Yes (Death)
  Sender: FDA-Public Use
  Company Number: T200601605

PATIENT
  Age: 59 Year
  Sex: Female

DRUGS (1)
  1. MORPHINE [Suspect]
     Dosage: OTHER
     Route: 050

REACTIONS (7)
  - ACCIDENTAL EXPOSURE [None]
  - HEADACHE [None]
  - HYPERTENSION [None]
  - HYPOTENSION [None]
  - INCORRECT ROUTE OF DRUG ADMINISTRATION [None]
  - MEDICATION ERROR [None]
  - NO THERAPEUTIC RESPONSE [None]
